FAERS Safety Report 6156421-2 (Version None)
Quarter: 2009Q2

REPORT INFORMATION
  Report Type: 
  Country: None (occurrence: None)
  Receive Date: 20090413
  Receipt Date: 20090405
  Transmission Date: 20091009
  Serious: Yes (Other)
  Sender: FDA-Public Use
  Company Number: CHPA2009US08835

PATIENT
  Age: 45 Year
  Sex: Male
  Weight: 97.5 kg

DRUGS (2)
  1. BENEFIBER W/WHEAT DEXTRIN (NCH) (WHEAT DEXTRIN (NCH) [Suspect]
     Indication: DIVERTICULITIS
     Dosage: 45 TO 48 TSP, QD, ORAL; 1 TO 2 TSP,QD,ORAL
     Route: 048
     Dates: start: 20090301, end: 20090327
  2. BENEFIBER W/WHEAT DEXTRIN (NCH) (WHEAT DEXTRIN (NCH) [Suspect]
     Indication: DIVERTICULITIS
     Dosage: 45 TO 48 TSP, QD, ORAL; 1 TO 2 TSP,QD,ORAL
     Route: 048
     Dates: start: 20090403

REACTIONS (2)
  - HEART RATE IRREGULAR [None]
  - OVERDOSE [None]
